FAERS Safety Report 11371955 (Version 1)
Quarter: 2015Q3

REPORT INFORMATION
  Report Type: Spontaneous
  Country: JP (occurrence: JP)
  Receive Date: 20150812
  Receipt Date: 20150812
  Transmission Date: 20151125
  Serious: Yes (Other)
  Sender: FDA-Public Use
  Company Number: JP-ABBVIE-15P-087-1439234-00

PATIENT
  Age: 13 Year
  Sex: Female
  Weight: 54 kg

DRUGS (5)
  1. REMIFENTANIL [Concomitant]
     Active Substance: REMIFENTANIL
     Indication: INDUCTION AND MAINTENANCE OF ANAESTHESIA
     Dosage: 0.3 MCG/KG/MIN
     Route: 042
  2. PRECEDEX [Suspect]
     Active Substance: DEXMEDETOMIDINE HYDROCHLORIDE
     Indication: INDUCTION AND MAINTENANCE OF ANAESTHESIA
     Dosage: 0.5 MCG/KG OVER 20 MINUTES
     Route: 042
  3. VALPROIC ACID. [Concomitant]
     Active Substance: VALPROIC ACID
     Indication: SEIZURE
  4. PRECEDEX [Suspect]
     Active Substance: DEXMEDETOMIDINE HYDROCHLORIDE
     Dosage: BETWEEN 0.5 TO 6.0 MCG/KG/HR
     Route: 042
  5. REMIFENTANIL [Concomitant]
     Active Substance: REMIFENTANIL
     Dosage: BETWEEN 0.2 TO 0.5 MCG/KG/MIN
     Route: 042

REACTIONS (2)
  - Hypotension [Recovered/Resolved]
  - Motor dysfunction [Recovered/Resolved]
